FAERS Safety Report 15764187 (Version 1)
Quarter: 2018Q4

REPORT INFORMATION
  Report Type: Spontaneous
  Country: US (occurrence: US)
  Receive Date: 20181227
  Receipt Date: 20181227
  Transmission Date: 20190205
  Serious: Yes (Other)
  Sender: FDA-Public Use
  Company Number: US-ALKEM LABORATORIES LIMITED-US-ALKEM-2018-11544

PATIENT
  Age: 67 Year
  Sex: Male

DRUGS (4)
  1. MYCOPHENOLATE MOFETIL. [Suspect]
     Active Substance: MYCOPHENOLATE MOFETIL
     Indication: IMMUNOSUPPRESSANT DRUG THERAPY
     Dosage: 500 MG, BID
     Route: 065
     Dates: start: 2006, end: 201401
  2. TACROLIMUS. [Suspect]
     Active Substance: TACROLIMUS
     Indication: IMMUNOSUPPRESSANT DRUG THERAPY
     Dosage: UNK
     Route: 065
     Dates: start: 2006, end: 2010
  3. RAPAMYCIN [Suspect]
     Active Substance: SIROLIMUS
     Dosage: 1 MG, QD
     Route: 065
     Dates: start: 201401
  4. RAPAMYCIN [Suspect]
     Active Substance: SIROLIMUS
     Indication: IMMUNOSUPPRESSANT DRUG THERAPY
     Dosage: 3 MG, QD
     Route: 065

REACTIONS (3)
  - Hepatitis C [Unknown]
  - Hepatocellular carcinoma [Recovering/Resolving]
  - Malignant melanoma [Recovering/Resolving]

NARRATIVE: CASE EVENT DATE: 2008
